FAERS Safety Report 9333540 (Version 2)
Quarter: 2013Q3

REPORT INFORMATION
  Report Type: Spontaneous
  Country: US (occurrence: US)
  Receive Date: 20130606
  Receipt Date: 20130717
  Transmission Date: 20140515
  Serious: No
  Sender: FDA-Public Use
  Company Number: US-PFIZER INC-2013167214

PATIENT
  Age: 39 Year
  Sex: Female
  Weight: 90.7 kg

DRUGS (3)
  1. CLINDAMYCIN PHOSPHATE [Suspect]
     Indication: BACTERIAL VAGINOSIS
     Dosage: UNK, 1X/DAY
     Route: 067
     Dates: start: 20130528
  2. METROGEL [Suspect]
     Indication: BACTERIAL VAGINOSIS
     Dosage: UNK, 1X/DAY
     Dates: start: 20130524, end: 20130527
  3. ELMIRON [Concomitant]
     Indication: CYSTITIS INTERSTITIAL
     Dosage: 200 MG, 2X/DAY

REACTIONS (3)
  - Circumstance or information capable of leading to medication error [Unknown]
  - Poor quality drug administered [Unknown]
  - Product packaging quantity issue [Unknown]
